FAERS Safety Report 6450392-7 (Version None)
Quarter: 2009Q4

REPORT INFORMATION
  Report Type: 
  Country: None (occurrence: None)
  Receive Date: 20091123
  Receipt Date: 20091113
  Transmission Date: 20100525
  Serious: Yes (Hospitalization, Other)
  Sender: FDA-Public Use
  Company Number: US-ALEXION-A200900936

PATIENT
  Sex: Male

DRUGS (11)
  1. SOLIRIS [Suspect]
     Indication: PAROXYSMAL NOCTURNAL HAEMOGLOBINURIA
     Dosage: 600 MG, QW
     Route: 042
     Dates: start: 20070521, end: 20070611
  2. SOLIRIS [Suspect]
     Dosage: 900 MG, Q2W
     Route: 042
     Dates: start: 20070618
  3. SOLIRIS [Suspect]
     Dosage: 900 MG, Q12D
     Route: 042
     Dates: end: 20090801
  4. SOLIRIS [Suspect]
     Dosage: 1200 MG, Q2W
     Route: 042
     Dates: start: 20090801
  5. KLOR-CON [Concomitant]
  6. ZANTAC                             /00550802/ [Concomitant]
  7. PRILOSEC [Concomitant]
  8. FOLIC ACID [Concomitant]
  9. NEUPOGEN [Concomitant]
     Indication: NEUTROPENIA
     Dosage: UNK
     Dates: start: 20091001
  10. VANCOMYCIN [Concomitant]
     Indication: CELLULITIS
     Dosage: UNK
     Dates: start: 20091001, end: 20091101
  11. CEFTAZIDIME [Concomitant]
     Indication: CELLULITIS
     Dosage: UNK
     Dates: start: 20091001, end: 20091101

REACTIONS (8)
  - ANAEMIA [None]
  - BLOOD BILIRUBIN INCREASED [None]
  - CELLULITIS [None]
  - HAEMOLYSIS [None]
  - LYMPHADENOPATHY MEDIASTINAL [None]
  - NEUTROPENIA [None]
  - PERIPHERAL VASCULAR DISORDER [None]
  - RENAL FAILURE CHRONIC [None]
